FAERS Safety Report 5951098-0 (Version None)
Quarter: 2008Q4

REPORT INFORMATION
  Report Type: 
  Country: None (occurrence: None)
  Receive Date: 20081112
  Receipt Date: 20081112
  Transmission Date: 20090506
  Serious: No
  Sender: FDA-Public Use
  Company Number: None

PATIENT
  Sex: Male
  Weight: 90.7194 kg

DRUGS (1)
  1. CARDURA [Suspect]
     Indication: DRUG INEFFECTIVE
     Dosage: 8MG ONCE PO DAILY
     Route: 048
     Dates: start: 20081007, end: 20081107

REACTIONS (2)
  - ILL-DEFINED DISORDER [None]
  - PRODUCT QUALITY ISSUE [None]
